FAERS Safety Report 7724396-8 (Version None)
Quarter: 2011Q3

REPORT INFORMATION
  Report Type: 
  Country: None (occurrence: None)
  Receive Date: 20110901
  Receipt Date: 20110829
  Transmission Date: 20111222
  Serious: Yes (Hospitalization, Other)
  Sender: FDA-Public Use
  Company Number: US-PFIZER INC-2011201335

PATIENT
  Sex: Female
  Weight: 74.83 kg

DRUGS (9)
  1. CELEBREX [Suspect]
     Indication: OSTEOARTHRITIS
  2. CELEBREX [Suspect]
     Indication: RHEUMATOID ARTHRITIS
     Dosage: 200 MG, DAILY
     Dates: end: 20110503
  3. WARFARIN [Concomitant]
     Indication: PULMONARY THROMBOSIS
     Dosage: 4 MG THREE TIMES A WEEK AND 2 MG FOUR TIMES A WEEK AS PER THE BLOOD FINDINGS
  4. KEFLEX [Concomitant]
     Indication: URINARY TRACT INFECTION
     Dosage: UNK
     Dates: start: 20110819
  5. OMEPRAZOLE [Concomitant]
     Indication: DYSPEPSIA
     Dosage: 40 MG, DAILY
  6. DETROL LA [Concomitant]
     Indication: URINARY TRACT INFECTION
     Dosage: UNK
  7. AMLODIPINE BESYLATE AND BENAZEPRIL HCL [Concomitant]
     Indication: HYPERTENSION
     Dosage: 5/10 MG
  8. CRESTOR [Concomitant]
     Indication: BLOOD CHOLESTEROL INCREASED
     Dosage: 10 MG, UNK
  9. LEVOTHYROXINE [Concomitant]
     Indication: THYROID DISORDER
     Dosage: 50 UG, UNK

REACTIONS (3)
  - IMPAIRED HEALING [None]
  - LOWER LIMB FRACTURE [None]
  - PERONEAL NERVE PALSY [None]
